FAERS Safety Report 8757448 (Version 1)
Quarter: 2012Q4

REPORT INFORMATION
  Report Type: 
  Country: US (occurrence: US)
  Receive Date: 20120828
  Receipt Date: 20120828
  Transmission Date: 20130627
  Serious: No
  Sender: FDA-Public Use
  Company Number: US-PFIZER INC-2012210511

PATIENT
  Sex: Female

DRUGS (1)
  1. CHANTIX [Suspect]
     Dosage: UNK
     Route: 048
     Dates: start: 2012

REACTIONS (3)
  - Restlessness [Unknown]
  - Abnormal dreams [Unknown]
  - Sleep disorder [Unknown]
